FAERS Safety Report 8079850-9 (Version None)
Quarter: 2012Q1

REPORT INFORMATION
  Report Type: 
  Country: None (occurrence: None)
  Receive Date: 20120128
  Receipt Date: 20110830
  Transmission Date: 20120608
  Serious: Yes (Other)
  Sender: FDA-Public Use
  Company Number: US-ABBOTT-11P-163-0850765-00

PATIENT
  Sex: Female
  Weight: 81.72 kg

DRUGS (1)
  1. HUMIRA [Suspect]
     Indication: PSORIASIS
     Dates: start: 20100401, end: 20100801

REACTIONS (4)
  - FALL [None]
  - ANKLE FRACTURE [None]
  - PSORIASIS [None]
  - SQUAMOUS CELL CARCINOMA [None]
